FAERS Safety Report 15477302 (Version 3)
Quarter: 2019Q1

REPORT INFORMATION
  Report Type: Spontaneous
  Country: ES (occurrence: ES)
  Receive Date: 20181009
  Receipt Date: 20190120
  Transmission Date: 20190417
  Serious: Yes (Hospitalization, Other)
  Sender: FDA-Public Use
  Company Number: ES-BRISTOL-MYERS SQUIBB COMPANY-BMS-2018-087172

PATIENT
  Age: 58 Year
  Sex: Female

DRUGS (11)
  1. SIMVASTATIN. [Concomitant]
     Active Substance: SIMVASTATIN
     Indication: DYSLIPIDAEMIA
     Dosage: 20 MG, QD
     Route: 065
  2. FLUOXETINE [Concomitant]
     Active Substance: FLUOXETINE HYDROCHLORIDE
     Indication: DEPRESSION
     Dosage: 20 MG, QD
     Route: 065
  3. EZETIMIBE. [Concomitant]
     Active Substance: EZETIMIBE
     Indication: DYSLIPIDAEMIA
     Dosage: 20 MG, QD
     Route: 065
  4. ENALAPRIL [Concomitant]
     Active Substance: ENALAPRIL
     Indication: CHRONIC KIDNEY DISEASE
     Dosage: 20 MG, QD
     Route: 065
  5. METFORMIN HYDROCHLORIDE. [Suspect]
     Active Substance: METFORMIN HYDROCHLORIDE
     Indication: TYPE 2 DIABETES MELLITUS
     Dosage: 850 MG, BID
     Route: 065
  6. IOPROMIDE. [Suspect]
     Active Substance: IOPROMIDE
     Indication: ABDOMINAL DISCOMFORT
     Route: 042
  7. PREGABALIN. [Suspect]
     Active Substance: PREGABALIN
     Indication: SCOLIOSIS
     Route: 065
  8. PREGABALIN. [Suspect]
     Active Substance: PREGABALIN
     Indication: PAIN
     Dosage: PAIN ASSOCIATED WITH LUMBAR SCOLIOSIS75 MG, BID
     Route: 065
  9. PREGABALIN. [Suspect]
     Active Substance: PREGABALIN
     Indication: BACK PAIN
     Route: 065
  10. SITAGLIPTIN [Concomitant]
     Active Substance: SITAGLIPTIN
     Indication: TYPE 2 DIABETES MELLITUS
     Dosage: 50 MG, BID
     Route: 065
  11. ENALAPRIL [Concomitant]
     Active Substance: ENALAPRIL
     Indication: HYPERTENSION
     Route: 065

REACTIONS (10)
  - Parkinsonism [Recovered/Resolved]
  - Gait inability [Unknown]
  - Musculoskeletal stiffness [Unknown]
  - Reduced facial expression [Unknown]
  - Somnolence [Recovered/Resolved]
  - Abdominal discomfort [Unknown]
  - Bradyphrenia [Unknown]
  - Malaise [Unknown]
  - Product administration error [Unknown]
  - Acute kidney injury [Recovered/Resolved]
